FAERS Safety Report 23892684 (Version 1)
Quarter: 2024Q2

REPORT INFORMATION
  Report Type: Spontaneous
  Country: AE (occurrence: AE)
  Receive Date: 20240524
  Receipt Date: 20240524
  Transmission Date: 20240716
  Serious: Yes (Other)
  Sender: FDA-Public Use
  Company Number: AE-BEIGENE-BGN-2024-007655

PATIENT

DRUGS (1)
  1. BRUKINSA [Suspect]
     Active Substance: ZANUBRUTINIB
     Indication: Product used for unknown indication
     Dosage: UNK
     Dates: start: 20240215, end: 202403

REACTIONS (3)
  - Somnolence [Unknown]
  - Impaired work ability [Unknown]
  - Dizziness [Unknown]

NARRATIVE: CASE EVENT DATE: 20240201
